FAERS Safety Report 12092537 (Version 1)
Quarter: 2016Q1

REPORT INFORMATION
  Report Type: Spontaneous
  Country: GB (occurrence: GB)
  Receive Date: 20160219
  Receipt Date: 20160219
  Transmission Date: 20160526
  Serious: Yes (Other)
  Sender: FDA-Public Use
  Company Number: GB-DRREDDYS-GER/UKI/16/0076476

PATIENT
  Age: 70 Year
  Sex: Female

DRUGS (8)
  1. ACCRETE D3 [Concomitant]
     Indication: OSTEOPOROSIS
  2. SIMVASTATIN. [Concomitant]
     Active Substance: SIMVASTATIN
     Indication: BLOOD CHOLESTEROL INCREASED
  3. ASACOL [Concomitant]
     Active Substance: MESALAMINE
     Indication: ERYTHEMA
  4. LANSOPRAZOLE. [Concomitant]
     Active Substance: LANSOPRAZOLE
     Indication: HIATUS HERNIA
  5. SEREVENT DISKUS [Concomitant]
     Active Substance: SALMETEROL XINAFOATE
     Indication: CHRONIC OBSTRUCTIVE PULMONARY DISEASE
  6. FELODIPINE. [Concomitant]
     Active Substance: FELODIPINE
     Indication: HYPERTENSION
  7. ZOLEDRONIC ACID [Suspect]
     Active Substance: ZOLEDRONIC ACID
     Indication: PRODUCT USED FOR UNKNOWN INDICATION
     Route: 041
     Dates: start: 20151215
  8. COD LIVER OIL [Concomitant]
     Active Substance: COD LIVER OIL
     Indication: MUSCULOSKELETAL STIFFNESS
     Dosage: FIRST THING ONE HOUR BEFORE FOOD

REACTIONS (8)
  - Musculoskeletal pain [Unknown]
  - Tremor [Unknown]
  - Back pain [Unknown]
  - Muscle spasms [Recovered/Resolved]
  - Bone pain [Unknown]
  - Spinal pain [Unknown]
  - Body temperature increased [Unknown]
  - Movement disorder [Unknown]

NARRATIVE: CASE EVENT DATE: 20151215
